FAERS Safety Report 20493449 (Version 4)
Quarter: 2022Q4

REPORT INFORMATION
  Report Type: Spontaneous
  Country: US (occurrence: US)
  Receive Date: 20220220
  Receipt Date: 20221020
  Transmission Date: 20230113
  Serious: Yes (Other)
  Sender: FDA-Public Use
  Company Number: US-BRISTOL-MYERS SQUIBB COMPANY-BMS-2022-023244

PATIENT
  Age: 59 Year
  Sex: Female

DRUGS (2)
  1. ORENCIA [Suspect]
     Active Substance: ABATACEPT
     Indication: Product used for unknown indication
     Route: 058
  2. METHOTREXATE [Suspect]
     Active Substance: METHOTREXATE
     Indication: Product used for unknown indication
     Route: 065

REACTIONS (11)
  - Haemorrhage [Unknown]
  - Arthropathy [Unknown]
  - Haemorrhage [Unknown]
  - Contusion [Unknown]
  - Neuralgia [Unknown]
  - Malaise [Unknown]
  - Balance disorder [Unknown]
  - Fatigue [Unknown]
  - Sciatica [Unknown]
  - Arthritis [Unknown]
  - Peripheral swelling [Recovering/Resolving]

NARRATIVE: CASE EVENT DATE: 20220401
